FAERS Safety Report 10057578 (Version 2)
Quarter: 2014Q2

REPORT INFORMATION
  Report Type: Spontaneous
  Country: JP (occurrence: JP)
  Receive Date: 20140404
  Receipt Date: 20140404
  Transmission Date: 20141212
  Serious: Yes (Hospitalization)
  Sender: FDA-Public Use
  Company Number: PHHY2014JP036026

PATIENT
  Age: 88 Year
  Sex: Male

DRUGS (9)
  1. SLOW K [Suspect]
     Indication: HYPOKALAEMIA
     Dosage: 600 MG, QD
     Route: 048
     Dates: end: 20140318
  2. WARFARIN [Suspect]
     Dosage: UNK UKN, UNK
     Route: 048
  3. BIO-THREE [Concomitant]
     Dosage: 3 G, UNK
     Route: 048
     Dates: start: 20140313
  4. REBAMIPIDE [Concomitant]
     Dosage: 100 MG, UNK
     Route: 048
  5. POTASSIUM CHLORIDE [Concomitant]
     Dosage: 0.6 G, UNK
     Route: 048
     Dates: start: 20140319
  6. METHYCOOL [Concomitant]
     Dosage: 500 UG, UNK
     Route: 048
  7. MOSAPRIDE CITRATE [Concomitant]
     Dosage: 5 MG, UNK
     Route: 048
  8. SODIUM RABEPRAZOLE [Concomitant]
     Dosage: 10 MG, UNK
     Route: 048
  9. FRANDOL S [Concomitant]
     Dosage: 40 MG, UNK

REACTIONS (4)
  - Colitis [Recovered/Resolved]
  - Dysphagia [Not Recovered/Not Resolved]
  - Prothrombin time ratio increased [Unknown]
  - Drug dependence [Unknown]
